FAERS Safety Report 10657401 (Version 1)
Quarter: 2014Q4

REPORT INFORMATION
  Report Type: Spontaneous
  Country: US (occurrence: None)
  Receive Date: 20141216
  Receipt Date: 20141216
  Transmission Date: 20150529
  Serious: Yes (Death)
  Sender: FDA-Public Use
  Company Number: None

PATIENT
  Age: 61 Year
  Sex: Male
  Weight: 67.3 kg

DRUGS (15)
  1. CARBOPLATIN. [Suspect]
     Active Substance: CARBOPLATIN
     Dosage: AUC 1.5 WEEKLY
     Route: 042
     Dates: start: 20141023, end: 20141126
  2. HYDROCORTISONE CREAM  1% [Concomitant]
  3. MAGIC MOUTHWASH [Concomitant]
     Active Substance: DIPHENHYDRAMINE HYDROCHLORIDE\LIDOCAINE HYDROCHLORIDE\NYSTATIN
  4. SENNOSIDES. [Concomitant]
     Active Substance: SENNOSIDES
  5. PROCHLORPERAZINE. [Concomitant]
     Active Substance: PROCHLORPERAZINE
  6. DEXAMETHASONE. [Concomitant]
     Active Substance: DEXAMETHASONE
  7. ERLOTINIB [Suspect]
     Active Substance: ERLOTINIB
     Indication: SQUAMOUS CELL CARCINOMA
     Route: 048
     Dates: start: 20141112, end: 20141211
  8. LOPERAMIDE [Concomitant]
     Active Substance: LOPERAMIDE
  9. LEVOTHYROXINE [Concomitant]
     Active Substance: LEVOTHYROXINE
  10. ONDANSETRON [Concomitant]
     Active Substance: ONDANSETRON
  11. ACETAMINOPHEN-HYDROCODONE [Concomitant]
  12. CLINDAMYCIN 1% GEL [Concomitant]
  13. CETUXIMAB [Suspect]
     Active Substance: CETUXIMAB
     Dosage: AUC 1.5 WEEKLY , IV
     Route: 042
     Dates: start: 20141023, end: 20141112
  14. PACLITAXEL. [Suspect]
     Active Substance: PACLITAXEL
     Indication: SQUAMOUS CELL CARCINOMA
     Route: 042
     Dates: start: 20141023, end: 20141126
  15. DOCUSATE [Concomitant]
     Active Substance: DOCUSATE

REACTIONS (6)
  - Epistaxis [None]
  - Loss of consciousness [None]
  - Cardiac arrest [None]
  - Fall [None]
  - Seizure [None]
  - Mouth haemorrhage [None]

NARRATIVE: CASE EVENT DATE: 20141211
